FAERS Safety Report 21844679 (Version 1)
Quarter: 2023Q1

REPORT INFORMATION
  Report Type: Spontaneous
  Country: US (occurrence: None)
  Receive Date: 20230110
  Receipt Date: 20230110
  Transmission Date: 20230418
  Serious: No
  Sender: FDA-Public Use
  Company Number: None

PATIENT
  Age: 42 Year
  Sex: Female
  Weight: 72 kg

DRUGS (5)
  1. DUPIXENT [Suspect]
     Active Substance: DUPILUMAB
     Indication: Eczema
     Dosage: OTHER QUANTITY : 1 INJECTION(S);?OTHER FREQUENCY : EVERY TWO WEEKS;?
     Route: 058
     Dates: start: 20221017
  2. VITAMIN D [Concomitant]
  3. LYSINE [Concomitant]
     Active Substance: LYSINE
  4. OREGANO OIL [Concomitant]
  5. ZINC [Concomitant]
     Active Substance: ZINC

REACTIONS (4)
  - Erythema [None]
  - Pruritus [None]
  - Swelling face [None]
  - Skin exfoliation [None]

NARRATIVE: CASE EVENT DATE: 20221120
